FAERS Safety Report 17393172 (Version 1)
Quarter: 2020Q1

REPORT INFORMATION
  Report Type: Report from Study
  Country: CA (occurrence: CA)
  Receive Date: 20200208
  Receipt Date: 20200208
  Transmission Date: 20200409
  Serious: Yes (Other)
  Sender: FDA-Public Use
  Company Number: CA-HLSUS-2020-CA-000038

PATIENT
  Sex: Male

DRUGS (1)
  1. CLOZARIL [Suspect]
     Active Substance: CLOZAPINE
     Route: 048
     Dates: start: 20200118

REACTIONS (5)
  - Dementia with Lewy bodies [Unknown]
  - QRS axis abnormal [Unknown]
  - Parkinson^s disease [Unknown]
  - Off label use [Unknown]
  - Bundle branch block left [Unknown]
